FAERS Safety Report 14635161 (Version 2)
Quarter: 2018Q2

REPORT INFORMATION
  Report Type: Spontaneous
  Country: US (occurrence: US)
  Receive Date: 20180314
  Receipt Date: 20180503
  Transmission Date: 20180711
  Serious: No
  Sender: FDA-Public Use
  Company Number: US-GLAXOSMITHKLINE-US2018042148

PATIENT
  Age: 54 Year
  Sex: Female

DRUGS (16)
  1. OXYCONTIN [Concomitant]
     Active Substance: OXYCODONE HYDROCHLORIDE
  2. OXYGEN. [Concomitant]
     Active Substance: OXYGEN
  3. ADVAIR DISKUS [Suspect]
     Active Substance: FLUTICASONE PROPIONATE\SALMETEROL XINAFOATE
     Indication: ASTHMA
     Dosage: 1 PUFF(S), BID
     Dates: start: 201711
  4. HUMALOG [Concomitant]
     Active Substance: INSULIN LISPRO
  5. IRON [Concomitant]
     Active Substance: IRON
  6. ALLOPURINOL. [Concomitant]
     Active Substance: ALLOPURINOL
  7. ATENOLOL. [Concomitant]
     Active Substance: ATENOLOL
  8. MUCINEX [Concomitant]
     Active Substance: GUAIFENESIN
  9. VESICARE [Concomitant]
     Active Substance: SOLIFENACIN SUCCINATE
  10. SPIRIVA [Concomitant]
     Active Substance: TIOTROPIUM BROMIDE MONOHYDRATE
  11. GABAPENTIN. [Concomitant]
     Active Substance: GABAPENTIN
  12. LANTUS [Concomitant]
     Active Substance: INSULIN GLARGINE
  13. LANSOPRAZOLE. [Concomitant]
     Active Substance: LANSOPRAZOLE
  14. LISINOPRIL. [Concomitant]
     Active Substance: LISINOPRIL
  15. ASPIRIN. [Concomitant]
     Active Substance: ASPIRIN
  16. FISH OIL [Concomitant]
     Active Substance: FISH OIL

REACTIONS (5)
  - Product quality issue [Unknown]
  - Asthma [Not Recovered/Not Resolved]
  - Drug ineffective [Unknown]
  - Wrong technique in device usage process [Recovered/Resolved]
  - Dyspnoea [Not Recovered/Not Resolved]

NARRATIVE: CASE EVENT DATE: 20180213
